FAERS Safety Report 9665217 (Version 1)
Quarter: 2013Q4

REPORT INFORMATION
  Report Type: Spontaneous
  Country: KR (occurrence: KR)
  Receive Date: 20131103
  Receipt Date: 20131103
  Transmission Date: 20140711
  Serious: Yes (Hospitalization)
  Sender: FDA-Public Use
  Company Number: KR-MYLANLABS-2013S1023906

PATIENT
  Age: 82 Year
  Sex: Female

DRUGS (9)
  1. METFORMIN [Suspect]
     Indication: TYPE 2 DIABETES MELLITUS
     Dosage: 2000MG DAILY
     Route: 065
  2. CIMETIDINE [Suspect]
     Dosage: 600MG DAILY
     Route: 065
  3. GLICLAZIDE [Concomitant]
     Route: 065
  4. VOGLIBOSE [Concomitant]
     Route: 065
  5. FENOFIBRATE [Concomitant]
     Route: 065
  6. ATORVASTATIN [Concomitant]
     Route: 065
  7. LORAZEPAM [Concomitant]
     Route: 065
  8. THIOCTIC ACID [Concomitant]
     Route: 065
  9. DEXIBUPROFEN [Concomitant]
     Dosage: 600MG DAILY
     Route: 065

REACTIONS (3)
  - Lactic acidosis [Recovering/Resolving]
  - Pancreatitis acute [Recovering/Resolving]
  - Renal failure acute [Recovering/Resolving]
